FAERS Safety Report 7692663-2 (Version None)
Quarter: 2011Q3

REPORT INFORMATION
  Report Type: 
  Country: None (occurrence: None)
  Receive Date: 20110819
  Receipt Date: 20110809
  Transmission Date: 20111222
  Serious: Yes (Hospitalization, Other)
  Sender: FDA-Public Use
  Company Number: FR-AMGEN-FRASP2011040979

PATIENT
  Age: 65 Year
  Sex: Female

DRUGS (14)
  1. MABTHERA [Suspect]
     Dosage: CYCLIC DOSES
     Dates: start: 20081001
  2. LEVOTHYROXINE SODIUM [Concomitant]
     Dosage: UNK
  3. ORENCIA [Suspect]
     Dosage: UNK
     Route: 041
     Dates: start: 20100830, end: 20110323
  4. MABTHERA [Suspect]
     Dosage: CYCLIC DOSES
     Dates: start: 20080201
  5. MABTHERA [Suspect]
     Dosage: CYCLIC DOSES
     Dates: start: 20090501
  6. ENBREL [Suspect]
     Indication: RHEUMATOID ARTHRITIS
     Dosage: UNK
     Route: 058
     Dates: start: 20070626, end: 20071201
  7. HUMIRA [Suspect]
     Dosage: UNK
     Route: 058
     Dates: start: 20071201, end: 20080401
  8. ATACAND [Concomitant]
     Dosage: UNK
  9. MOPRAL                             /00661201/ [Concomitant]
     Dosage: UNK
  10. TOCILIZUMAB [Concomitant]
     Indication: RHEUMATOID ARTHRITIS
     Dosage: UNK
     Dates: start: 20110427
  11. METHOTREXATE [Suspect]
     Indication: RHEUMATOID ARTHRITIS
     Dosage: 2.5 MG, UNK
     Route: 048
     Dates: start: 20050401, end: 20061001
  12. METHOTREXATE [Suspect]
     Dosage: 2.5 MG, UNK
     Route: 048
     Dates: start: 20070626, end: 20110601
  13. MABTHERA [Suspect]
     Dosage: CYCLIC DOSES
     Dates: start: 20100101
  14. PREDNISONE [Concomitant]
     Indication: RHEUMATOID ARTHRITIS
     Dosage: UNK
     Dates: start: 19920101

REACTIONS (4)
  - FALL [None]
  - SMALL CELL LUNG CANCER STAGE UNSPECIFIED [None]
  - WRIST FRACTURE [None]
  - NON-CARDIAC CHEST PAIN [None]
